FAERS Safety Report 4591142-9 (Version None)
Quarter: 2005Q1

REPORT INFORMATION
  Report Type: 
  Country: None (occurrence: None)
  Receive Date: 20050225
  Receipt Date: 20050216
  Transmission Date: 20050727
  Serious: Yes (Other)
  Sender: FDA-Public Use
  Company Number: DE-JNJFOC-20050203931

PATIENT
  Age: 92 Year
  Sex: Male

DRUGS (2)
  1. REMINYL [Suspect]
     Indication: DEMENTIA
     Route: 049
  2. ASPIRIN [Concomitant]
     Route: 049

REACTIONS (1)
  - PEMPHIGOID [None]
